FAERS Safety Report 20089883 (Version 1)
Quarter: 2021Q4

REPORT INFORMATION
  Report Type: Spontaneous
  Country: US (occurrence: None)
  Receive Date: 20211119
  Receipt Date: 20211119
  Transmission Date: 20220303
  Serious: Yes (Hospitalization, Other)
  Sender: FDA-Public Use
  Company Number: 2021A807160

PATIENT
  Age: 20280 Day
  Sex: Female
  Weight: 118.8 kg

DRUGS (2)
  1. FARXIGA [Suspect]
     Active Substance: DAPAGLIFLOZIN PROPANEDIOL
     Indication: Blood glucose decreased
     Route: 048
     Dates: start: 20211104, end: 20211107
  2. MORPHINE [Concomitant]
     Active Substance: MORPHINE

REACTIONS (9)
  - Pancreatitis [Not Recovered/Not Resolved]
  - Renal failure [Not Recovered/Not Resolved]
  - Drug hypersensitivity [Not Recovered/Not Resolved]
  - Lip swelling [Recovered/Resolved]
  - Vomiting [Recovered/Resolved]
  - Abdominal pain [Not Recovered/Not Resolved]
  - Oedematous pancreatitis [Not Recovered/Not Resolved]
  - Hydrothorax [Not Recovered/Not Resolved]
  - Drug ineffective [Not Recovered/Not Resolved]

NARRATIVE: CASE EVENT DATE: 20211107
